FAERS Safety Report 18079704 (Version 3)
Quarter: 2020Q3

REPORT INFORMATION
  Report Type: Spontaneous
  Country: US (occurrence: US)
  Receive Date: 20200728
  Receipt Date: 20200820
  Transmission Date: 20201103
  Serious: No
  Sender: FDA-Public Use
  Company Number: US-GLAXOSMITHKLINE-US2020AMR141072

PATIENT
  Sex: Female

DRUGS (2)
  1. ZEJULA [Suspect]
     Active Substance: NIRAPARIB
     Indication: OVARIAN CANCER
     Dosage: 100 MG, QD
     Dates: start: 20200707
  2. ZEJULA [Suspect]
     Active Substance: NIRAPARIB
     Dosage: 200 MG, QD

REACTIONS (4)
  - Hypoaesthesia [Not Recovered/Not Resolved]
  - Carbohydrate antigen 125 increased [Unknown]
  - Blood pressure increased [Not Recovered/Not Resolved]
  - Heart rate increased [Unknown]
